FAERS Safety Report 7573156 (Version 7)
Quarter: 2018Q3

REPORT INFORMATION
  Report Type: Report from Study
  Country: JP (occurrence: JP)
  Receive Date: 20100903
  Receipt Date: 20180831
  Transmission Date: 20181010
  Serious: Yes (Hospitalization)
  Sender: FDA-Public Use
  Company Number: PHHY2010JP55568

PATIENT
  Age: 76 Year
  Sex: Male

DRUGS (7)
  1. TAKEPRON [Concomitant]
     Active Substance: LANSOPRAZOLE
     Indication: CHRONIC GASTRITIS
     Dosage: 15 MG, QD
     Route: 048
  2. DIFLUCAN [Concomitant]
     Active Substance: FLUCONAZOLE
     Indication: PROPHYLAXIS
     Dosage: 100 MG, QD
     Route: 048
  3. MAGMITT [Concomitant]
     Active Substance: MAGNESIUM OXIDE
     Indication: CONSTIPATION
     Dosage: 500 MG, QD
     Route: 048
  4. HERBAL NOS [Concomitant]
     Active Substance: HERBALS
     Indication: PROPHYLAXIS
     Dosage: 7.5 G, QD
     Route: 048
     Dates: start: 20091030
  5. LOXOPROFEN [Concomitant]
     Active Substance: LOXOPROFEN
     Indication: BACK PAIN
     Dosage: UNK UNK, PRN
     Route: 048
  6. ZYLORIC [Concomitant]
     Active Substance: ALLOPURINOL
     Indication: HYPERURICAEMIA
     Dosage: 100 MG, QD
     Route: 048
  7. TASIGNA [Suspect]
     Active Substance: NILOTINIB
     Indication: CHRONIC MYELOID LEUKAEMIA
     Dosage: 400 MG, QD
     Route: 048
     Dates: start: 20090911, end: 20100727

REACTIONS (6)
  - Malaise [Not Recovered/Not Resolved]
  - Emphysema [Not Recovered/Not Resolved]
  - Pyrexia [Recovered/Resolved]
  - Pleural effusion [Recovered/Resolved]
  - Interstitial lung disease [Recovered/Resolved]
  - Respiratory failure [Recovering/Resolving]

NARRATIVE: CASE EVENT DATE: 20090911
